FAERS Safety Report 8388739-7 (Version None)
Quarter: 2012Q2

REPORT INFORMATION
  Report Type: 
  Country: None (occurrence: None)
  Receive Date: 20120528
  Receipt Date: 20120518
  Transmission Date: 20120825
  Serious: Yes (Hospitalization)
  Sender: FDA-Public Use
  Company Number: JP-BRISTOL-MYERS SQUIBB COMPANY-16606931

PATIENT
  Age: 68 Year
  Sex: Male
  Weight: 80 kg

DRUGS (2)
  1. CISPLATIN [Suspect]
     Indication: GASTRIC CANCER
     Route: 042
     Dates: start: 20120502
  2. S-1 [Suspect]
     Indication: GASTRIC CANCER
     Dosage: 3WEEK ON,2 WEEK OFF SCHEDULE
     Route: 048
     Dates: start: 20120423, end: 20120512

REACTIONS (1)
  - GASTRIC ULCER HAEMORRHAGE [None]
